FAERS Safety Report 10091371 (Version 1)
Quarter: 2014Q2

REPORT INFORMATION
  Report Type: Spontaneous
  Country: US (occurrence: US)
  Receive Date: 20140421
  Receipt Date: 20140421
  Transmission Date: 20141212
  Serious: No
  Sender: FDA-Public Use
  Company Number: US-B.I. PHARMACEUTICALS,INC./RIDGEFIELD-2014-BI-16515BP

PATIENT
  Sex: Female
  Weight: 71 kg

DRUGS (5)
  1. SPIRIVA [Suspect]
     Indication: CHRONIC OBSTRUCTIVE PULMONARY DISEASE
     Dosage: 18 MCG
     Route: 055
     Dates: start: 2004
  2. ADVAIR [Concomitant]
     Route: 055
  3. SINGULAIR [Concomitant]
     Route: 048
  4. POTASSIUM [Concomitant]
     Route: 048
  5. VITAMIN D [Concomitant]
     Route: 048

REACTIONS (2)
  - Cataract [Recovered/Resolved]
  - Cataract [Not Recovered/Not Resolved]
